FAERS Safety Report 4338581-9 (Version None)
Quarter: 2004Q2

REPORT INFORMATION
  Report Type: 
  Country: None (occurrence: None)
  Receive Date: 20040407
  Receipt Date: 20040323
  Transmission Date: 20050107
  Serious: Yes (Death)
  Sender: FDA-Public Use
  Company Number: S04-IRL-01376-01

PATIENT
  Age: 54 Year
  Sex: Female
  Weight: 79 kg

DRUGS (8)
  1. CITALOPRAM HYDROBROMIDE [Suspect]
     Indication: DEPRESSION
     Dosage: 20 MG QD PO
     Route: 048
     Dates: start: 20020621, end: 20030826
  2. CHLORPROMAZINE [Concomitant]
  3. DALMANE [Concomitant]
  4. VITAMIN C [Concomitant]
  5. GAVISCON [Concomitant]
  6. FOLIC ACID [Concomitant]
  7. AKINETON [Concomitant]
  8. MODECATE SANOFI WINTHROP (FLUPHENAZINE DECANOATE) [Concomitant]

REACTIONS (2)
  - ATRIAL FIBRILLATION [None]
  - SUDDEN DEATH [None]
